FAERS Safety Report 10046747 (Version 2)
Quarter: 2017Q2

REPORT INFORMATION
  Report Type: Report from Study
  Country: DE (occurrence: DE)
  Receive Date: 20140331
  Receipt Date: 20170404
  Transmission Date: 20170829
  Serious: Yes (Death)
  Sender: FDA-Public Use
  Company Number: DE-ROCHE-1373843

PATIENT
  Sex: Female
  Weight: 75 kg

DRUGS (2)
  1. BEVACIZUMAB [Suspect]
     Active Substance: BEVACIZUMAB
     Indication: BREAST CANCER
     Route: 042
     Dates: start: 20121217, end: 20130218
  2. BEVACIZUMAB [Suspect]
     Active Substance: BEVACIZUMAB
     Route: 042
     Dates: start: 20130107

REACTIONS (2)
  - Pain [Fatal]
  - Pelvic fluid collection [Fatal]

NARRATIVE: CASE EVENT DATE: 20130222
